FAERS Safety Report 9798478 (Version 1)
Quarter: 2013Q4

REPORT INFORMATION
  Report Type: Spontaneous
  Country: PT (occurrence: None)
  Receive Date: 20131230
  Receipt Date: 20131230
  Transmission Date: 20140711
  Serious: Yes (Hospitalization)
  Sender: FDA-Public Use
  Company Number: 2013HINLIT0313

PATIENT
  Age: 43 Year
  Sex: Male

DRUGS (1)
  1. LITHIUM (LITHIUM) UNKNOWN [Suspect]
     Indication: PRODUCT USED FOR UNKNOWN INDICATION
     Dosage: UNK, UKNOWN

REACTIONS (7)
  - Toxicity to various agents [None]
  - Polyuria [None]
  - Polydipsia [None]
  - Renal failure acute [None]
  - Hypernatraemia [None]
  - Diabetes insipidus [None]
  - Pneumonia [None]
